FAERS Safety Report 6970084-5 (Version None)
Quarter: 2010Q3

REPORT INFORMATION
  Report Type: 
  Country: None (occurrence: None)
  Receive Date: 20100903
  Receipt Date: 20100826
  Transmission Date: 20110219
  Serious: Yes (Hospitalization)
  Sender: FDA-Public Use
  Company Number: UTC-001378

PATIENT
  Age: 58 Year
  Sex: Male

DRUGS (2)
  1. TYVASO [Suspect]
     Dosage: 216 MCG (54 MCG, 4 IN 1 D), INHALATION
     Route: 055
     Dates: start: 20091130
  2. REVATIO [Concomitant]

REACTIONS (1)
  - CARDIAC FAILURE CONGESTIVE [None]
